FAERS Safety Report 14190971 (Version 6)
Quarter: 2017Q4

REPORT INFORMATION
  Report Type: Spontaneous
  Country: KR (occurrence: KR)
  Receive Date: 20171115
  Receipt Date: 20171218
  Transmission Date: 20180321
  Serious: Yes (Other)
  Sender: FDA-Public Use
  Company Number: KR-009507513-1706KOR001207

PATIENT
  Age: 43 Year
  Sex: Female
  Weight: 68.3 kg

DRUGS (20)
  1. NOXAFIL [Suspect]
     Active Substance: POSACONAZOLE
     Indication: ANTIFUNGAL PROPHYLAXIS
     Dosage: 300 MG, BID
     Route: 048
     Dates: start: 20170418, end: 20170418
  2. FOLIC ACID. [Concomitant]
     Active Substance: FOLIC ACID
     Indication: ROUTINE HEALTH MAINTENANCE
     Dosage: 1 MG, BID
     Route: 048
     Dates: start: 20170418
  3. CHLORPHENIRAMINE. [Concomitant]
     Active Substance: CHLORPHENIRAMINE
     Indication: ALLERGY PROPHYLAXIS
     Dosage: 4 MG, ONCE
     Route: 042
     Dates: start: 20170418, end: 20170418
  4. TABAXIN [Concomitant]
     Active Substance: PIPERACILLIN SODIUM\TAZOBACTAM SODIUM
     Indication: PYREXIA
     Dosage: 4.5 G, THREE TIMES A DAY
     Route: 042
     Dates: start: 20170419, end: 20170430
  5. CEFTRIAXONE. [Concomitant]
     Active Substance: CEFTRIAXONE
     Indication: PYREXIA
     Dosage: 2 G, QD
     Route: 042
     Dates: start: 20170418, end: 20170418
  6. PROPACETAMOL [Concomitant]
     Active Substance: PROPACETAMOL
     Indication: PYREXIA
     Dosage: 1 G, PRN
     Route: 042
     Dates: start: 20170417, end: 20170419
  7. NOXAFIL [Suspect]
     Active Substance: POSACONAZOLE
     Dosage: 300 MG, QD
     Route: 048
     Dates: start: 20170419, end: 20170529
  8. ADELAVIN (FLAVIN ADENINE DINUCLEOTIDE) [Concomitant]
     Indication: ALANINE AMINOTRANSFERASE INCREASED
     Dosage: 10 MG, BID
     Route: 042
     Dates: start: 20170418, end: 20170427
  9. DICKNOL [Concomitant]
     Indication: PYREXIA
     Dosage: 45 MG, ONCE
     Route: 030
     Dates: start: 20170419, end: 20170419
  10. DEXAMETHASONE. [Concomitant]
     Active Substance: DEXAMETHASONE
     Dosage: 5 MG, ONCE DAILY
     Route: 042
     Dates: start: 20170424, end: 20170424
  11. ALLOPURINOL. [Concomitant]
     Active Substance: ALLOPURINOL
     Indication: PROPHYLAXIS
     Dosage: 100 MG, THREE TIMES A DAY
     Route: 048
     Dates: start: 20170419, end: 20170427
  12. B COMBIN [Concomitant]
     Indication: VITAMIN SUPPLEMENTATION
     Dosage: 1 TABLET, QD
     Route: 048
     Dates: start: 20170418
  13. PENNEL [Concomitant]
     Indication: ALANINE AMINOTRANSFERASE INCREASED
     Dosage: 1 CAPSULE, TID
     Route: 048
     Dates: start: 20170418, end: 20170518
  14. DICKNOL [Concomitant]
     Dosage: 45 MG, PRN
     Route: 030
     Dates: start: 20170421, end: 20170422
  15. CEFEPIME [Concomitant]
     Active Substance: CEFEPIME HYDROCHLORIDE
     Indication: PYREXIA
     Dosage: 2 G, TID
     Route: 042
     Dates: start: 20170418, end: 20170419
  16. CEFEPIME [Concomitant]
     Active Substance: CEFEPIME HYDROCHLORIDE
     Dosage: 2 G, TID
     Route: 042
     Dates: start: 20170503, end: 20170506
  17. PROPACETAMOL [Concomitant]
     Active Substance: PROPACETAMOL
     Dosage: 1 G, PRN
     Route: 042
     Dates: start: 20170422, end: 20170422
  18. PROPACETAMOL [Concomitant]
     Active Substance: PROPACETAMOL
     Dosage: 1 G, PRN
     Route: 042
     Dates: start: 20170504, end: 20170510
  19. DEXAMETHASONE. [Concomitant]
     Active Substance: DEXAMETHASONE
     Indication: PYREXIA
     Dosage: 10 MG, ONCE DAILY
     Route: 042
     Dates: start: 20170419, end: 20170423
  20. DEXAMETHASONE. [Concomitant]
     Active Substance: DEXAMETHASONE
     Dosage: 5 MG, ONCE DAILY
     Route: 042
     Dates: start: 20170510, end: 20170511

REACTIONS (10)
  - Aspartate aminotransferase increased [Recovered/Resolved]
  - Abdominal pain upper [Recovered/Resolved]
  - Refractoriness to platelet transfusion [Recovered/Resolved]
  - Nausea [Recovered/Resolved]
  - Rash [Recovered/Resolved]
  - Hypertension [Recovering/Resolving]
  - Rash papular [Recovered/Resolved]
  - Decreased appetite [Recovered/Resolved]
  - Blood bilirubin increased [Recovered/Resolved]
  - Vomiting [Recovered/Resolved]

NARRATIVE: CASE EVENT DATE: 20170419
